FAERS Safety Report 7266229-2 (Version None)
Quarter: 2011Q1

REPORT INFORMATION
  Report Type: 
  Country: None (occurrence: None)
  Receive Date: 20110131
  Receipt Date: 20100120
  Transmission Date: 20110831
  Serious: No
  Sender: FDA-Public Use
  Company Number: US-ABBOTT-10P-163-0621929-00

PATIENT
  Age: 60 Year
  Sex: Male
  Weight: 70.824 kg

DRUGS (3)
  1. APRESOLIX [Concomitant]
     Indication: PROSTATE CANCER
  2. LUPRON DEPOT [Suspect]
     Indication: PROSTATE CANCER
     Dates: start: 20091216
  3. CASODEX [Concomitant]
     Indication: PROSTATE CANCER

REACTIONS (6)
  - ERECTILE DYSFUNCTION [None]
  - LIBIDO DECREASED [None]
  - DIZZINESS [None]
  - SEMEN VOLUME DECREASED [None]
  - VERTIGO [None]
  - PENILE SIZE REDUCED [None]
